FAERS Safety Report 7079382-0 (Version None)
Quarter: 2010Q4

REPORT INFORMATION
  Report Type: 
  Country: None (occurrence: None)
  Receive Date: 20101022
  Receipt Date: 20101007
  Transmission Date: 20110411
  Serious: Yes (Other)
  Sender: FDA-Public Use
  Company Number: TCI2010A04349

PATIENT
  Age: 23 Year
  Sex: Male

DRUGS (2)
  1. LANSOPRAZOLE [Suspect]
     Dosage: 30 MG (30 MG,1 D)
  2. HYDROCORTISONE [Suspect]
     Indication: HORMONE REPLACEMENT THERAPY
     Dosage: 30 MG (30 MG,1 D)

REACTIONS (11)
  - ALTERED STATE OF CONSCIOUSNESS [None]
  - CULTURE POSITIVE [None]
  - ENTEROCOCCUS TEST POSITIVE [None]
  - GASTRITIS BACTERIAL [None]
  - GASTROINTESTINAL HYPOMOTILITY [None]
  - HYPERTHERMIA [None]
  - LIVER DISORDER [None]
  - MYDRIASIS [None]
  - PORTAL VENOUS GAS [None]
  - PROTHROMBIN TIME SHORTENED [None]
  - SUPRAVENTRICULAR TACHYCARDIA [None]
